FAERS Safety Report 9968293 (Version 1)
Quarter: 2014Q1

REPORT INFORMATION
  Report Type: Report from Study
  Country: US (occurrence: US)
  Receive Date: 20140306
  Receipt Date: 20140306
  Transmission Date: 20141002
  Serious: No
  Sender: FDA-Public Use
  Company Number: US-ABBVIE-13P-163-1140123-00

PATIENT
  Age: 27 Year
  Sex: Male
  Weight: 90.8 kg

DRUGS (4)
  1. HUMIRA [Suspect]
     Indication: PSORIASIS
     Dates: start: 2009
  2. HUMIRA [Suspect]
     Indication: PSORIATIC ARTHROPATHY
  3. MELOXICAM [Concomitant]
     Indication: PSORIATIC ARTHROPATHY
  4. MELOXICAM [Concomitant]
     Indication: PAIN

REACTIONS (6)
  - Pharyngitis streptococcal [Recovered/Resolved]
  - Bronchitis [Recovered/Resolved]
  - Pain [Not Recovered/Not Resolved]
  - Blood glucose decreased [Recovered/Resolved]
  - Dental caries [Not Recovered/Not Resolved]
  - Tooth fracture [Not Recovered/Not Resolved]
